FAERS Safety Report 4433393-X (Version None)
Quarter: 2004Q3

REPORT INFORMATION
  Report Type: 
  Country: None (occurrence: None)
  Receive Date: 20040824
  Receipt Date: 20040817
  Transmission Date: 20050211
  Serious: Yes (Hospitalization)
  Sender: FDA-Public Use
  Company Number: GB-JNJFOC-20040805240

PATIENT
  Age: 61 Year
  Sex: Female

DRUGS (9)
  1. REMICADE [Suspect]
     Indication: RHEUMATOID ARTHRITIS
     Dosage: 156 MG, INTRAVENOUS
     Route: 042
     Dates: start: 20030320
  2. METHOTREXATE [Concomitant]
  3. PREDNISOLONE [Concomitant]
  4. TIBOLONE              (TIBOLONE) [Concomitant]
  5. CELEBREX [Concomitant]
  6. LANSOPRAZOLE [Concomitant]
  7. FOLIC ACID (FOLICA ACID) [Concomitant]
  8. ISONIAZID [Concomitant]
  9. PYRIDOXINE HCL TAB [Concomitant]

REACTIONS (2)
  - RENAL COLIC [None]
  - UROGRAPHY ABNORMAL [None]
